FAERS Safety Report 7767176-X (Version None)
Quarter: 2011Q3

REPORT INFORMATION
  Report Type: 
  Country: None (occurrence: None)
  Receive Date: 20110922
  Receipt Date: 20110413
  Transmission Date: 20111222
  Serious: No
  Sender: FDA-Public Use
  Company Number: US-ASTRAZENECA-2011SE21138

PATIENT
  Age: 30 Year
  Sex: Female

DRUGS (2)
  1. SEROQUEL [Suspect]
     Indication: SLEEP DISORDER
     Route: 048
     Dates: start: 20110401
  2. BENADRYL [Concomitant]

REACTIONS (5)
  - OFF LABEL USE [None]
  - ARTHRALGIA [None]
  - DYSPHONIA [None]
  - POOR QUALITY SLEEP [None]
  - DRY MOUTH [None]
